FAERS Safety Report 8013002-3 (Version None)
Quarter: 2011Q4

REPORT INFORMATION
  Report Type: 
  Country: None (occurrence: None)
  Receive Date: 20111229
  Receipt Date: 20111219
  Transmission Date: 20120403
  Serious: Yes (Death)
  Sender: FDA-Public Use
  Company Number: US-PFIZER INC-2011310042

PATIENT
  Age: 45 Year
  Sex: Female

DRUGS (4)
  1. ETHANOL [Suspect]
  2. ALPRAZOLAM [Suspect]
  3. ACETAMINOPHEN [Suspect]
  4. LORAZEPAM [Suspect]

REACTIONS (1)
  - ACCIDENTAL EXPOSURE [None]
